FAERS Safety Report 9305877 (Version 1)
Quarter: 2013Q2

REPORT INFORMATION
  Report Type: Spontaneous
  Country: US (occurrence: US)
  Receive Date: 20130523
  Receipt Date: 20130523
  Transmission Date: 20140414
  Serious: Yes (Other)
  Sender: FDA-Public Use
  Company Number: US-PFIZER INC-2013156428

PATIENT
  Age: 76 Year
  Sex: Female
  Weight: 70.3 kg

DRUGS (2)
  1. FLECTOR [Suspect]
     Indication: SKIN IRRITATION
     Dosage: UNK
     Route: 062
     Dates: start: 20130422, end: 2013
  2. FLECTOR [Suspect]
     Indication: CONTUSION

REACTIONS (4)
  - Staphylococcal infection [Recovering/Resolving]
  - Wound [Unknown]
  - Pain in extremity [Not Recovered/Not Resolved]
  - Off label use [Unknown]
